FAERS Safety Report 21974059 (Version 1)
Quarter: 2023Q1

REPORT INFORMATION
  Report Type: Spontaneous
  Country: CH (occurrence: CH)
  Receive Date: 20230209
  Receipt Date: 20230209
  Transmission Date: 20230417
  Serious: Yes (Other)
  Sender: FDA-Public Use
  Company Number: CH-MYLANLABS-2023M1015088

PATIENT
  Age: 42 Year
  Sex: Female

DRUGS (6)
  1. ADALIMUMAB [Suspect]
     Active Substance: ADALIMUMAB
     Indication: Hypergammaglobulinaemia benign monoclonal
     Dosage: UNK
     Route: 065
  2. ADALIMUMAB [Suspect]
     Active Substance: ADALIMUMAB
     Indication: Spondyloarthropathy
  3. IBUPROFEN [Suspect]
     Active Substance: IBUPROFEN
     Indication: Hypergammaglobulinaemia benign monoclonal
     Dosage: UNK
     Route: 065
  4. IBUPROFEN [Suspect]
     Active Substance: IBUPROFEN
     Indication: Spondyloarthropathy
  5. METHOTREXATE [Suspect]
     Active Substance: METHOTREXATE
     Indication: Hypergammaglobulinaemia benign monoclonal
     Dosage: UNK
     Route: 065
  6. METHOTREXATE [Suspect]
     Active Substance: METHOTREXATE
     Indication: Spondyloarthropathy

REACTIONS (2)
  - Renal failure [Recovered/Resolved]
  - Drug ineffective [Unknown]
